FAERS Safety Report 4307233-3 (Version None)
Quarter: 2004Q1

REPORT INFORMATION
  Report Type: 
  Country: None (occurrence: None)
  Receive Date: 20040226
  Receipt Date: 20040211
  Transmission Date: 20041129
  Serious: Yes (Hospitalization)
  Sender: FDA-Public Use
  Company Number: UK066521

PATIENT
  Age: 15 Year
  Sex: Female

DRUGS (2)
  1. NEUPOGEN [Suspect]
     Indication: CHEMOTHERAPY
     Dosage: 250 MG, SC
     Route: 058
  2. IRINOTECAN [Suspect]
     Dosage: 22 MG, IV
     Route: 042

REACTIONS (5)
  - ANAEMIA [None]
  - DEHYDRATION [None]
  - INFECTION [None]
  - NEUTROPENIA [None]
  - PYREXIA [None]
